FAERS Safety Report 20223161 (Version 4)
Quarter: 2022Q1

REPORT INFORMATION
  Report Type: Spontaneous
  Country: IT (occurrence: IT)
  Receive Date: 20211223
  Receipt Date: 20220209
  Transmission Date: 20220423
  Serious: Yes (Life-Threatening, Hospitalization)
  Sender: FDA-Public Use
  Company Number: IT-CELGENE-ITA-20211204197

PATIENT
  Age: 71 Year
  Sex: Female
  Weight: 63.1 kg

DRUGS (9)
  1. LENALIDOMIDE [Suspect]
     Active Substance: LENALIDOMIDE
     Indication: Plasma cell myeloma
     Route: 048
     Dates: start: 20210503, end: 20211111
  2. LENALIDOMIDE [Suspect]
     Active Substance: LENALIDOMIDE
     Route: 048
     Dates: start: 20211210
  3. DARATUMUMAB [Suspect]
     Active Substance: DARATUMUMAB
     Indication: Plasma cell myeloma
     Dosage: UNKNOWN
     Route: 058
     Dates: start: 20190628
  4. DARATUMUMAB [Suspect]
     Active Substance: DARATUMUMAB
     Route: 058
     Dates: start: 20211112
  5. BORTEZOMIB [Concomitant]
     Active Substance: BORTEZOMIB
     Indication: Plasma cell myeloma
     Dosage: UNKNOWN
     Route: 058
     Dates: start: 20190628, end: 20200512
  6. BORTEZOMIB [Concomitant]
     Active Substance: BORTEZOMIB
     Dosage: UNKNOWN
     Route: 058
     Dates: start: 20200512
  7. DEXAMETHASONE [Concomitant]
     Active Substance: DEXAMETHASONE
     Indication: Plasma cell myeloma
     Dosage: UNKNOWN
     Route: 048
     Dates: start: 20200516
  8. ASPIRIN [Concomitant]
     Active Substance: ASPIRIN
     Indication: Thrombosis prophylaxis
     Dosage: 1 IN 1 DAY
     Route: 048
     Dates: start: 20200407
  9. FILGRASTIM [Concomitant]
     Active Substance: FILGRASTIM
     Indication: Prophylaxis
     Dosage: UNKNOWN
     Route: 058
     Dates: start: 20210626

REACTIONS (1)
  - Herpes zoster reactivation [Recovered/Resolved]

NARRATIVE: CASE EVENT DATE: 20211115
